FAERS Safety Report 9204112 (Version 1)
Quarter: 2013Q2

REPORT INFORMATION
  Report Type: Spontaneous
  Country: BR (occurrence: BR)
  Receive Date: 20130402
  Receipt Date: 20130402
  Transmission Date: 20140414
  Serious: Yes (Other)
  Sender: FDA-Public Use
  Company Number: BR-PFIZER INC-2013098913

PATIENT
  Age: 67 Year
  Sex: Female
  Weight: 67 kg

DRUGS (5)
  1. XALATAN [Suspect]
     Dosage: ONE DROP IN EACH EYE, 1X/DAY
     Route: 047
     Dates: start: 2011, end: 2012
  2. XALACOM [Suspect]
     Dosage: ONE DROP IN BOTH EYES, ONCE DAILY
     Route: 047
     Dates: start: 2012
  3. BENICAR [Concomitant]
  4. PURAN T4 [Concomitant]
  5. SELOZOK [Concomitant]

REACTIONS (5)
  - Intraocular pressure test abnormal [Unknown]
  - Hypertension [Unknown]
  - Intraocular pressure increased [Unknown]
  - Intraocular pressure test abnormal [Unknown]
  - Thyroid disorder [Unknown]
